FAERS Safety Report 10253402 (Version 1)
Quarter: 2014Q2

REPORT INFORMATION
  Report Type: Other
  Country: US (occurrence: US)
  Receive Date: 20140623
  Receipt Date: 20140623
  Transmission Date: 20141212
  Serious: No
  Sender: FDA-Public Use
  Company Number: US-SHIONOGI, INC-2014000492

PATIENT
  Age: 61 Year
  Sex: Female

DRUGS (1)
  1. OSPHENA [Suspect]
     Indication: PRODUCT USED FOR UNKNOWN INDICATION
     Dosage: UNK, ONE PILL ONCE DAILY
     Route: 048

REACTIONS (1)
  - Rash generalised [Unknown]
